FAERS Safety Report 9120837 (Version 1)
Quarter: 2013Q1

REPORT INFORMATION
  Report Type: Spontaneous
  Country: US (occurrence: US)
  Receive Date: 20130226
  Receipt Date: 20130226
  Transmission Date: 20140127
  Serious: Yes (Hospitalization)
  Sender: FDA-Public Use
  Company Number: US-GLAXOSMITHKLINE-A0725136A

PATIENT
  Age: 55 Year
  Sex: Female
  Weight: 120.5 kg

DRUGS (36)
  1. ALBUTEROL [Concomitant]
  2. AZATHIOPRINE [Concomitant]
  3. NEXIUM [Concomitant]
  4. RIDAURA [Concomitant]
  5. HUMULIN [Concomitant]
  6. IBUPROFEN [Concomitant]
  7. CELEXA [Concomitant]
  8. ZETIA [Concomitant]
  9. NOVOLIN [Concomitant]
  10. LANTUS [Concomitant]
  11. ALPHAGAN [Concomitant]
  12. CITALOPRAM [Concomitant]
  13. LEVAQUIN [Concomitant]
  14. PLAVIX [Concomitant]
  15. NEURONTIN [Concomitant]
  16. PREVACID [Concomitant]
  17. PROCARDIA [Concomitant]
  18. LEXAPRO [Concomitant]
  19. TRAMADOL [Concomitant]
  20. TOPROL XL [Concomitant]
  21. FUROSEMIDE [Concomitant]
  22. LORAZEPAM [Concomitant]
  23. VALIUM [Concomitant]
  24. PROZAC [Concomitant]
  25. PAXIL [Concomitant]
  26. ZOLOFT [Concomitant]
  27. AVANDIA [Suspect]
     Indication: TYPE 2 DIABETES MELLITUS
     Dosage: 4MG TWICE PER DAY
     Route: 048
     Dates: start: 2000, end: 2007
  28. REGULAR INSULIN [Concomitant]
     Dosage: 20MG TWICE PER DAY
     Dates: start: 1995, end: 2008
  29. NITROGLYCERINE [Concomitant]
     Dates: start: 2002
  30. ACTOS [Concomitant]
  31. JANUVIA [Concomitant]
  32. CEPHALEXIN [Concomitant]
  33. PREDNISONE [Concomitant]
  34. LORATADINE [Concomitant]
  35. HYDROCODONE/APAP [Concomitant]
  36. GLYBURIDE [Concomitant]

REACTIONS (10)
  - Heart injury [Not Recovered/Not Resolved]
  - Myocardial infarction [Unknown]
  - Acute coronary syndrome [Unknown]
  - Arteriosclerosis [Unknown]
  - Thrombosis [Unknown]
  - Cardiovascular disorder [Unknown]
  - Carotid artery disease [Unknown]
  - Cardiac failure congestive [Unknown]
  - Peripheral vascular disorder [Unknown]
  - Heart disease congenital [Unknown]
